FAERS Safety Report 8222956-1 (Version None)
Quarter: 2012Q1

REPORT INFORMATION
  Report Type: 
  Country: None (occurrence: None)
  Receive Date: 20120320
  Receipt Date: 20120306
  Transmission Date: 20120608
  Serious: Yes (Hospitalization)
  Sender: FDA-Public Use
  Company Number: IT-GILEAD-2012-0052379

PATIENT
  Age: 56 Year
  Sex: Male

DRUGS (4)
  1. WARFARIN SODIUM [Suspect]
     Dosage: UNK
     Dates: start: 20110922
  2. RAMIPRIL [Suspect]
     Indication: HYPERTENSION
     Dosage: UNK
     Dates: start: 20110227
  3. RANOLAZINE [Suspect]
     Indication: ARRHYTHMIA PROPHYLAXIS
     Dosage: 750 MG, TID
     Route: 048
     Dates: start: 20120227, end: 20120302
  4. BLINDED PLACEBO [Suspect]
     Indication: ARRHYTHMIA PROPHYLAXIS
     Dosage: 750 MG, TID
     Route: 048
     Dates: start: 20120227, end: 20120302

REACTIONS (1)
  - ATRIAL FLUTTER [None]
